FAERS Safety Report 5859576-X (Version None)
Quarter: 2008Q3

REPORT INFORMATION
  Report Type: 
  Country: None (occurrence: None)
  Receive Date: 20080827
  Receipt Date: 20080821
  Transmission Date: 20090109
  Serious: Yes (Other)
  Sender: FDA-Public Use
  Company Number: B0534083A

PATIENT
  Age: 77 Year
  Sex: Female

DRUGS (5)
  1. SEREVENT [Suspect]
     Indication: ASTHMA
     Dosage: 2PUFF TWICE PER DAY
     Route: 055
     Dates: start: 20080808
  2. SEREVENT [Suspect]
     Dosage: 2PUFF TWICE PER DAY
     Route: 055
     Dates: start: 19970101
  3. BECLOMETHASONE DIPROPIONATE [Suspect]
     Indication: ASTHMA
     Dosage: 2PUFF AT NIGHT
     Route: 055
     Dates: start: 19970101
  4. VENTOLIN [Concomitant]
     Indication: ASTHMATIC CRISIS
     Route: 055
     Dates: start: 20080820, end: 20080820
  5. HOMEOPATHY [Concomitant]

REACTIONS (4)
  - ASTHMA [None]
  - DISTURBANCE IN ATTENTION [None]
  - FEELING DRUNK [None]
  - MALAISE [None]
